FAERS Safety Report 7777147-5 (Version None)
Quarter: 2011Q3

REPORT INFORMATION
  Report Type: 
  Country: None (occurrence: None)
  Receive Date: 20110926
  Receipt Date: 20110920
  Transmission Date: 20111222
  Serious: Yes (Other)
  Sender: FDA-Public Use
  Company Number: JM-JNJFOC-20080703941

PATIENT
  Sex: Male
  Weight: 2.5 kg

DRUGS (3)
  1. HALDOL [Suspect]
     Indication: ILL-DEFINED DISORDER
  2. COGENTIN [Suspect]
     Indication: ILL-DEFINED DISORDER
  3. LITHIUM CARBONATE [Suspect]
     Indication: PRODUCT USED FOR UNKNOWN INDICATION

REACTIONS (2)
  - SMALL FOR DATES BABY [None]
  - PLACENTAL DISORDER [None]
